FAERS Safety Report 5795873-4 (Version None)
Quarter: 2008Q3

REPORT INFORMATION
  Report Type: 
  Country: None (occurrence: None)
  Receive Date: 20080701
  Receipt Date: 20080619
  Transmission Date: 20090109
  Serious: Yes (Hospitalization)
  Sender: FDA-Public Use
  Company Number: AU-NOVOPROD-274360

PATIENT
  Age: 63 Year
  Sex: Male

DRUGS (2)
  1. NOVORAPID PENFILL [Suspect]
     Indication: DIABETES MELLITUS
  2. LANTUS [Concomitant]
     Indication: DIABETES MELLITUS

REACTIONS (1)
  - PERIPHERAL ISCHAEMIA [None]
